FAERS Safety Report 12463329 (Version 1)
Quarter: 2016Q2

REPORT INFORMATION
  Report Type: Spontaneous
  Country: US (occurrence: None)
  Receive Date: 20160613
  Receipt Date: 20160613
  Transmission Date: 20160815
  Serious: Yes (Disabling)
  Sender: FDA-Public Use
  Company Number: None

PATIENT
  Age: 71 Year
  Sex: Male
  Weight: 99.79 kg

DRUGS (2)
  1. LEVOFLOXACIN, 500 MG, 500 MG [Suspect]
     Active Substance: LEVOFLOXACIN
     Indication: URINARY TRACT INFECTION
     Route: 048
     Dates: start: 20160522, end: 20160527
  2. WELLBUTERINE [Concomitant]

REACTIONS (2)
  - Pain [None]
  - Asthenia [None]

NARRATIVE: CASE EVENT DATE: 20160529
